FAERS Safety Report 22139007 (Version 1)
Quarter: 2023Q1

REPORT INFORMATION
  Report Type: Spontaneous
  Country: JP (occurrence: JP)
  Receive Date: 20230327
  Receipt Date: 20230327
  Transmission Date: 20230417
  Serious: Yes (Life-Threatening)
  Sender: FDA-Public Use
  Company Number: JP-002147023-NVSJ2023JP005223

PATIENT
  Sex: Male

DRUGS (4)
  1. AMLODIPINE BESYLATE [Suspect]
     Active Substance: AMLODIPINE BESYLATE
     Indication: Product used for unknown indication
     Dosage: UNK
     Route: 048
  2. AMLODIPINE BESYLATE [Suspect]
     Active Substance: AMLODIPINE BESYLATE
     Dosage: UNK, MASSIVE DOSE
     Route: 048
  3. ATENOLOL [Suspect]
     Active Substance: ATENOLOL
     Indication: Product used for unknown indication
     Dosage: UNK
     Route: 048
  4. ATENOLOL [Suspect]
     Active Substance: ATENOLOL
     Dosage: UNK, MASSIVE DOSE
     Route: 048

REACTIONS (6)
  - Toxicity to various agents [Unknown]
  - Shock [Unknown]
  - Cardiac arrest [Unknown]
  - Bradycardia [Unknown]
  - Blood pressure decreased [Unknown]
  - Overdose [Unknown]

NARRATIVE: CASE EVENT DATE: 20220801
